FAERS Safety Report 23012238 (Version 2)
Quarter: 2025Q2

REPORT INFORMATION
  Report Type: Spontaneous
  Country: CA (occurrence: CA)
  Receive Date: 20230930
  Receipt Date: 20250429
  Transmission Date: 20250717
  Serious: Yes (Other)
  Sender: AUROBINDO
  Company Number: CA-AUROBINDO-AUR-APL-2023-060447

PATIENT
  Age: 27 Year
  Sex: Female

DRUGS (3)
  1. QUETIAPINE [Suspect]
     Active Substance: QUETIAPINE
     Indication: Insomnia
     Route: 065
  2. LITHIUM [Suspect]
     Active Substance: LITHIUM
     Indication: Mania
     Route: 065
  3. RISPERIDONE [Suspect]
     Active Substance: RISPERIDONE
     Indication: Bipolar disorder
     Route: 065

REACTIONS (3)
  - Diabetes insipidus [Recovered/Resolved]
  - Nocturia [Recovered/Resolved]
  - Drug interaction [Recovered/Resolved]
